FAERS Safety Report 6952308-3 (Version None)
Quarter: 2010Q3

REPORT INFORMATION
  Report Type: 
  Country: None (occurrence: None)
  Receive Date: 20100829
  Receipt Date: 20100503
  Transmission Date: 20110219
  Serious: No
  Sender: FDA-Public Use
  Company Number: US-ABBOTT-10P-163-0642181-00

PATIENT
  Sex: Female
  Weight: 59.02 kg

DRUGS (2)
  1. NIASPAN [Suspect]
     Indication: BLOOD CHOLESTEROL INCREASED
     Dosage: AT NIGHT
  2. NIASPAN [Suspect]
     Indication: HIGH DENSITY LIPOPROTEIN DECREASED

REACTIONS (5)
  - ERYTHEMA [None]
  - FEELING HOT [None]
  - FLUSHING [None]
  - MUSCLE SPASMS [None]
  - NAUSEA [None]
